FAERS Safety Report 21464986 (Version 4)
Quarter: 2022Q4

REPORT INFORMATION
  Report Type: Spontaneous
  Country: PT (occurrence: PT)
  Receive Date: 20221017
  Receipt Date: 20221219
  Transmission Date: 20230112
  Serious: Yes (Hospitalization, Other)
  Sender: FDA-Public Use
  Company Number: PT-SA-SAC20221013002063

PATIENT
  Age: 30 Year
  Sex: Female

DRUGS (7)
  1. CAPLACIZUMAB [Suspect]
     Active Substance: CAPLACIZUMAB
     Dosage: UNK
     Route: 065
     Dates: start: 20220826
  2. TAZOBACTAM [Concomitant]
     Active Substance: TAZOBACTAM
     Dosage: UNK
     Dates: start: 20220831
  3. VANCOMYCIN [Concomitant]
     Active Substance: VANCOMYCIN
     Dosage: UNK
     Dates: start: 20220831
  4. FLUCLOXACILLIN [Concomitant]
     Active Substance: FLUCLOXACILLIN
     Dosage: UNK
     Dates: start: 20220901
  5. LINEZOLID [Concomitant]
     Active Substance: LINEZOLID
     Dosage: UNK
     Dates: start: 20220901
  6. PIPERACILLIN [Concomitant]
     Active Substance: PIPERACILLIN
     Dosage: UNK
  7. METHYLPREDNISOLONE [Concomitant]
     Active Substance: METHYLPREDNISOLONE
     Dosage: 1 G (DURING 3 DAYS)
     Dates: start: 20220826

REACTIONS (14)
  - Pulmonary hypertension [Unknown]
  - Thrombosis [Unknown]
  - Pericardial effusion [Unknown]
  - Acute respiratory distress syndrome [Unknown]
  - Pyelonephritis [Unknown]
  - Septic shock [Unknown]
  - Pneumonia necrotising [Unknown]
  - ADAMTS13 activity abnormal [Unknown]
  - Condition aggravated [Unknown]
  - Hypertension [Unknown]
  - Lung consolidation [Unknown]
  - Respiratory failure [Unknown]
  - Pyrexia [Unknown]
  - Infusion related reaction [Unknown]

NARRATIVE: CASE EVENT DATE: 20220826
